FAERS Safety Report 7156583-4 (Version None)
Quarter: 2010Q4

REPORT INFORMATION
  Report Type: 
  Country: None (occurrence: None)
  Receive Date: 20101214
  Receipt Date: 20091106
  Transmission Date: 20110411
  Serious: No
  Sender: FDA-Public Use
  Company Number: US-ASTRAZENECA-2009SE24897

PATIENT
  Age: 51 Year
  Sex: Male

DRUGS (5)
  1. CRESTOR [Suspect]
     Route: 048
     Dates: start: 20090828, end: 20091020
  2. ADVIL [Concomitant]
  3. INDOCIN [Concomitant]
  4. XYZAL [Concomitant]
  5. NASONEX [Concomitant]

REACTIONS (2)
  - RASH [None]
  - SKIN LESION [None]
